FAERS Safety Report 6822139-3 (Version None)
Quarter: 2010Q3

REPORT INFORMATION
  Report Type: 
  Country: None (occurrence: None)
  Receive Date: 20100708
  Receipt Date: 20100629
  Transmission Date: 20110219
  Serious: Yes (Other)
  Sender: FDA-Public Use
  Company Number: CN-JNJFOC-20100509828

PATIENT
  Sex: Male

DRUGS (1)
  1. GOLD DAKTARIN [Suspect]
     Indication: TINEA PEDIS
     Route: 061

REACTIONS (4)
  - APPLICATION SITE ULCER [None]
  - DRUG HYPERSENSITIVITY [None]
  - PAIN [None]
  - SELF-MEDICATION [None]
